FAERS Safety Report 11877199 (Version 1)
Quarter: 2015Q4

REPORT INFORMATION
  Report Type: Report from Study
  Country: US (occurrence: ES)
  Receive Date: 20151229
  Receipt Date: 20151229
  Transmission Date: 20160305
  Serious: Yes (Other)
  Sender: FDA-Public Use
  Company Number: ES-AKRON, INC.-1045989

PATIENT
  Sex: Male
  Weight: 2 kg

DRUGS (2)
  1. COSOPT [Suspect]
     Active Substance: DORZOLAMIDE HYDROCHLORIDE\TIMOLOL MALEATE
     Indication: GLAUCOMA
     Route: 064
     Dates: start: 20090123, end: 200909
  2. TIMOFTOL 0.50% (TIMOLOL MALEATE) EYE DROPS, SOLUTION [Concomitant]
     Route: 064
     Dates: start: 2009, end: 2009

REACTIONS (5)
  - Foetal disorder [Recovered/Resolved]
  - Premature baby [Recovered/Resolved]
  - Exposure during breast feeding [Recovered/Resolved]
  - Foetal growth restriction [Recovered/Resolved]
  - Foetal exposure during pregnancy [Recovered/Resolved]

NARRATIVE: CASE EVENT DATE: 200901
